FAERS Safety Report 25651566 (Version 2)
Quarter: 2025Q3

REPORT INFORMATION
  Report Type: Spontaneous
  Country: EU (occurrence: EU)
  Receive Date: 20250806
  Receipt Date: 20250808
  Transmission Date: 20251020
  Serious: Yes (Hospitalization, Other)
  Sender: SK LIFE SCIENCE
  Company Number: EU-ACRAF SpA-2025-036916

PATIENT

DRUGS (3)
  1. XCOPRI [Suspect]
     Active Substance: CENOBAMATE
     Indication: Partial seizures
     Dosage: 75 MG DAILY IN THE EVENING
     Route: 065
  2. BRIVIACT [Suspect]
     Active Substance: BRIVARACETAM
     Indication: Product used for unknown indication
     Dosage: 50.0 MILLIGRAM(S) (25 MILLIGRAM(S), 2 IN 1 DAY)
     Route: 065
  3. LAMICTAL [Concomitant]
     Active Substance: LAMOTRIGINE
     Indication: Product used for unknown indication
     Dosage: 150 MILLIGRAM(S) (2 IN 1 DAY)
     Route: 065

REACTIONS (7)
  - Neonatal respiratory distress syndrome [Unknown]
  - Premature baby [Unknown]
  - Caesarean section [Unknown]
  - Apgar score low [Recovered/Resolved]
  - Mechanical ventilation [Recovered/Resolved]
  - Exposure during pregnancy [Unknown]
  - Off label use [Unknown]
